FAERS Safety Report 18532706 (Version 2)
Quarter: 2021Q3

REPORT INFORMATION
  Report Type: Spontaneous
  Country: US (occurrence: US)
  Receive Date: 20201123
  Receipt Date: 20210922
  Transmission Date: 20211014
  Serious: No
  Sender: FDA-Public Use
  Company Number: US-GLENMARK PHARMACEUTICALS-2020GMK049878

PATIENT

DRUGS (1)
  1. CLOTRIMAZOLE CREAM 1% [Suspect]
     Active Substance: CLOTRIMAZOLE
     Indication: GENITAL INFECTION FUNGAL
     Dosage: UNK; START DATE: FOR YEARS
     Route: 061

REACTIONS (2)
  - Drug ineffective [Unknown]
  - Application site discolouration [Unknown]
